FAERS Safety Report 14312575 (Version 2)
Quarter: 2018Q1

REPORT INFORMATION
  Report Type: Spontaneous
  Country: US (occurrence: US)
  Receive Date: 20171221
  Receipt Date: 20180130
  Transmission Date: 20180509
  Serious: No
  Sender: FDA-Public Use
  Company Number: US-PFIZER INC-2017539821

PATIENT
  Sex: Female

DRUGS (1)
  1. ADVIL [Suspect]
     Active Substance: IBUPROFEN
     Dosage: 2 DF, UNK (CONSUMED 2 OF THE CAPSULES)

REACTIONS (3)
  - Product odour abnormal [Unknown]
  - Poor quality drug administered [Unknown]
  - Retching [Unknown]
